FAERS Safety Report 20175086 (Version 1)
Quarter: 2021Q4

REPORT INFORMATION
  Report Type: Spontaneous
  Country: US (occurrence: None)
  Receive Date: 20211209
  Receipt Date: 20211209
  Transmission Date: 20220303
  Serious: Yes (Life-Threatening)
  Sender: FDA-Public Use
  Company Number: None

PATIENT
  Age: 60 Year
  Sex: Male

DRUGS (1)
  1. SOTROVIMAB [Suspect]
     Active Substance: SOTROVIMAB
     Indication: COVID-19
     Dosage: FREQUENCY : ONCE;?
     Route: 042
     Dates: start: 20211208, end: 20211208

REACTIONS (8)
  - Anaphylactic reaction [None]
  - Infusion related reaction [None]
  - Unresponsive to stimuli [None]
  - Anxiety [None]
  - Loss of consciousness [None]
  - Myalgia [None]
  - Cough [None]
  - Chills [None]

NARRATIVE: CASE EVENT DATE: 20211208
